FAERS Safety Report 20010903 (Version 1)
Quarter: 2021Q4

REPORT INFORMATION
  Report Type: Report from Study
  Country: GB (occurrence: GB)
  Receive Date: 20211029
  Receipt Date: 20211029
  Transmission Date: 20220304
  Serious: Yes (Hospitalization, Other)
  Sender: FDA-Public Use
  Company Number: None

PATIENT
  Age: 33 Year
  Sex: Male

DRUGS (8)
  1. LOSARTAN [Suspect]
     Active Substance: LOSARTAN
     Indication: Product used for unknown indication
     Dosage: 100 MG, QD
     Route: 048
  2. OMNITROPE [Suspect]
     Active Substance: SOMATROPIN
     Indication: Growth hormone deficiency
     Dosage: 0.2 MG, QD (AS DIRECTED)
     Route: 058
  3. CANAGLIFLOZIN [Concomitant]
     Active Substance: CANAGLIFLOZIN
     Indication: Product used for unknown indication
     Dosage: 300 MG, QD
     Route: 048
  4. GLICLAZIDE [Concomitant]
     Active Substance: GLICLAZIDE
     Indication: Product used for unknown indication
     Dosage: 80 MG, QD (25 X 80 MG)
     Route: 048
  5. INVOKANA [Concomitant]
     Active Substance: CANAGLIFLOZIN
     Indication: Product used for unknown indication
     Dosage: 300 UNKNOWN
  6. METFORMIN [Concomitant]
     Active Substance: METFORMIN HYDROCHLORIDE
     Indication: Product used for unknown indication
     Dosage: 1 G, BID
     Route: 048
  7. SOMATROPIN (HUMAN) [Concomitant]
     Indication: Product used for unknown indication
     Dosage: 0.2 MG, QD
     Route: 058
  8. TAMSULOSIN [Concomitant]
     Active Substance: TAMSULOSIN
     Indication: Product used for unknown indication
     Dosage: 400 UG, QD (URETHRAL STENT)
     Route: 048

REACTIONS (16)
  - Abdominal pain [Unknown]
  - Bacteraemia [Recovering/Resolving]
  - Hydronephrosis [Unknown]
  - C-reactive protein increased [Unknown]
  - Cough [Unknown]
  - Depressed mood [Unknown]
  - Pyrexia [Unknown]
  - Product dose omission issue [Unknown]
  - Haemoglobin increased [Unknown]
  - Headache [Unknown]
  - Condition aggravated [Unknown]
  - Renal disorder [Unknown]
  - Lethargy [Unknown]
  - Liposarcoma [Unknown]
  - Moraxella infection [Unknown]
  - Fatigue [Unknown]
